FAERS Safety Report 11051326 (Version 2)
Quarter: 2015Q2

REPORT INFORMATION
  Report Type: Report from Study
  Country: US (occurrence: US)
  Receive Date: 20150421
  Receipt Date: 20150609
  Transmission Date: 20150821
  Serious: Yes (Hospitalization)
  Sender: FDA-Public Use
  Company Number: US-SA-2015SA049604

PATIENT
  Age: 87 Year
  Sex: Female
  Weight: 178 kg

DRUGS (4)
  1. SOLOSTAR [Concomitant]
     Active Substance: DEVICE
     Dates: start: 2009
  2. METOPROLOL [Concomitant]
     Active Substance: METOPROLOL
  3. LISINOPRIL. [Concomitant]
     Active Substance: LISINOPRIL
  4. LANTUS SOLOSTAR [Suspect]
     Active Substance: INSULIN GLARGINE
     Indication: DIABETES MELLITUS
     Dosage: DOSE:15 UNIT(S)
     Route: 065
     Dates: start: 2009

REACTIONS (2)
  - Hip arthroplasty [Unknown]
  - Gait disturbance [Unknown]

NARRATIVE: CASE EVENT DATE: 2014
